FAERS Safety Report 16366642 (Version 1)
Quarter: 2019Q2

REPORT INFORMATION
  Report Type: Spontaneous
  Country: US (occurrence: US)
  Receive Date: 20190422
  Receipt Date: 20190422
  Transmission Date: 20190711
  Serious: No
  Sender: FDA-Public Use
  Company Number: None

PATIENT
  Age: 63 Year
  Sex: Female

DRUGS (1)
  1. CUPRIMINE [Suspect]
     Active Substance: PENICILLAMINE
     Indication: POLYMYOSITIS
     Route: 048
     Dates: start: 201804

REACTIONS (1)
  - Product use issue [None]

NARRATIVE: CASE EVENT DATE: 20190422
